FAERS Safety Report 14700745 (Version 2)
Quarter: 2018Q2

REPORT INFORMATION
  Report Type: Spontaneous
  Country: US (occurrence: US)
  Receive Date: 20180330
  Receipt Date: 20180517
  Transmission Date: 20180711
  Serious: Yes (Hospitalization)
  Sender: FDA-Public Use
  Company Number: US-JNJFOC-20180341654

PATIENT
  Age: 32 Year
  Sex: Female

DRUGS (3)
  1. ASPIRIN CHILDREN [Suspect]
     Active Substance: ASPIRIN
     Indication: PRODUCT USED FOR UNKNOWN INDICATION
     Route: 048
  2. XARELTO [Suspect]
     Active Substance: RIVAROXABAN
     Indication: PULMONARY EMBOLISM
     Dosage: 15 MG, 20 MG
     Route: 048
     Dates: start: 20160925, end: 20170222
  3. XARELTO [Suspect]
     Active Substance: RIVAROXABAN
     Indication: THROMBOSIS PROPHYLAXIS
     Dosage: 15 MG, 20 MG
     Route: 048
     Dates: start: 20160925, end: 20170222

REACTIONS (4)
  - Haemoptysis [Unknown]
  - Cardiac ventricular thrombosis [Unknown]
  - Pulmonary embolism [Unknown]
  - Haematemesis [Unknown]

NARRATIVE: CASE EVENT DATE: 201702
